FAERS Safety Report 23247585 (Version 2)
Quarter: 2024Q1

REPORT INFORMATION
  Report Type: Spontaneous
  Country: JP (occurrence: JP)
  Receive Date: 20231130
  Receipt Date: 20240123
  Transmission Date: 20240410
  Serious: Yes (Hospitalization, Other)
  Sender: FDA-Public Use
  Company Number: JP-AstraZeneca-CH-00516647A

PATIENT
  Age: 8 Decade
  Sex: Male

DRUGS (1)
  1. SOLIRIS [Suspect]
     Active Substance: ECULIZUMAB
     Indication: Myasthenia gravis
     Dosage: 1200 MILLIGRAM, Q2W
     Route: 041

REACTIONS (1)
  - Meningitis cryptococcal [Unknown]

NARRATIVE: CASE EVENT DATE: 20231113
